FAERS Safety Report 4458435-7 (Version None)
Quarter: 2004Q3

REPORT INFORMATION
  Report Type: 
  Country: None (occurrence: None)
  Receive Date: 20040924
  Receipt Date: 20040915
  Transmission Date: 20050211
  Serious: Yes (Hospitalization)
  Sender: FDA-Public Use
  Company Number: JP-MERCK-0409USA01656

PATIENT
  Age: 78 Year
  Sex: Male

DRUGS (6)
  1. BUFFERIN [Concomitant]
     Route: 048
     Dates: start: 20021201
  2. AZULENE SULFONATE SODIUM AND LEVOGLUTAMIDE [Concomitant]
     Route: 048
     Dates: start: 20021201
  3. CARDENALIN [Concomitant]
     Route: 048
     Dates: start: 20021201
  4. PEPCID [Suspect]
     Route: 048
     Dates: start: 20040601, end: 20040810
  5. ISOSORBIDE MONONITRATE [Concomitant]
     Route: 048
     Dates: start: 20021201
  6. NICORANDIL [Concomitant]
     Route: 048
     Dates: start: 20021201

REACTIONS (1)
  - ANAEMIA [None]
